FAERS Safety Report 17750324 (Version 1)
Quarter: 2020Q2

REPORT INFORMATION
  Report Type: Spontaneous
  Country: US (occurrence: US)
  Receive Date: 20200505
  Receipt Date: 20200505
  Transmission Date: 20200714
  Serious: No
  Sender: FDA-Public Use
  Company Number: None

PATIENT
  Sex: Female

DRUGS (1)
  1. LIFITEGRAST 5% SOLUTION [Suspect]
     Active Substance: LIFITEGRAST

REACTIONS (1)
  - Eye irritation [None]
